FAERS Safety Report 4308086-X (Version None)
Quarter: 2004Q1

REPORT INFORMATION
  Report Type: 
  Country: None (occurrence: None)
  Receive Date: 20040301
  Receipt Date: 20030502
  Transmission Date: 20041129
  Serious: No
  Sender: FDA-Public Use
  Company Number: US-BRISTOL-MYERS SQUIBB COMPANY-12262184

PATIENT
  Age: 55 Year
  Sex: Female
  Weight: 98 kg

DRUGS (6)
  1. GLUCOPHAGE [Suspect]
     Indication: DIABETES MELLITUS NON-INSULIN-DEPENDENT
     Route: 048
  2. GLUCOTROL XL [Concomitant]
     Dosage: DURATION OF THERAPY:  ^LESS THAN 2 YEARS^
  3. ZOLOFT [Concomitant]
     Dosage: DURATION OF THERAPY:  ^FORM YEARS^
  4. SYNTHROID [Concomitant]
     Dosage: DURATION OF THERAPY:  ^FOR YEARS^
  5. LIPITOR [Concomitant]
     Dosage: DURATION OF THERAPY:  ^FOR YEARS^
  6. ALDACTAZIDE [Concomitant]
     Dosage: DURATION OF THERAPY:  ^FOR YEARS^

REACTIONS (1)
  - WEIGHT INCREASED [None]
